FAERS Safety Report 21976281 (Version 1)
Quarter: 2023Q1

REPORT INFORMATION
  Report Type: Spontaneous
  Country: CZ (occurrence: CZ)
  Receive Date: 20230210
  Receipt Date: 20230210
  Transmission Date: 20230417
  Serious: Yes (Other)
  Sender: FDA-Public Use
  Company Number: CZ-BEH-2023154569

PATIENT
  Age: 9 Year
  Sex: Female

DRUGS (7)
  1. HUMAN IMMUNOGLOBULIN G [Suspect]
     Active Substance: HUMAN IMMUNOGLOBULIN G
     Indication: Multisystem inflammatory syndrome in children
     Dosage: 2 GRAM
     Route: 042
  2. ASPIRIN [Concomitant]
     Active Substance: ASPIRIN
     Indication: Multisystem inflammatory syndrome in children
  3. PREDNISONE [Concomitant]
     Active Substance: PREDNISONE
     Indication: Multisystem inflammatory syndrome in children
     Route: 048
  4. METHYLPREDNISOLONE [Concomitant]
     Active Substance: METHYLPREDNISOLONE
     Indication: Multisystem inflammatory syndrome in children
     Dosage: 10 MILLIGRAM, QD
     Route: 042
  5. NADROPARIN [Concomitant]
     Active Substance: NADROPARIN
     Indication: Multisystem inflammatory syndrome in children
  6. CEFOTAXIME [Concomitant]
     Active Substance: CEFOTAXIME SODIUM
     Indication: Multisystem inflammatory syndrome in children
  7. FUROSEMIDE [Concomitant]
     Active Substance: FUROSEMIDE

REACTIONS (6)
  - Headache [Unknown]
  - Hypertension [Unknown]
  - Clonic convulsion [Unknown]
  - Posterior reversible encephalopathy syndrome [Unknown]
  - Somnolence [Unknown]
  - Off label use [Unknown]
